FAERS Safety Report 7294621-9 (Version None)
Quarter: 2011Q1

REPORT INFORMATION
  Report Type: 
  Country: None (occurrence: None)
  Receive Date: 20110202
  Receipt Date: 20110118
  Transmission Date: 20110831
  Serious: Yes (Other)
  Sender: FDA-Public Use
  Company Number: AUR-APL-2011-00305

PATIENT
  Age: 52 Year
  Sex: Female
  Weight: 95.24 kg

DRUGS (5)
  1. LISINOPRIL [Suspect]
     Indication: SPONDYLITIS
     Dosage: 10MG-DAILY-ORAL
     Route: 048
     Dates: end: 20101201
  2. LISINOPRIL [Suspect]
     Indication: ARTHRITIS
     Dosage: 10MG-DAILY-ORAL
     Route: 048
     Dates: end: 20101201
  3. CELEBREX [Suspect]
     Indication: HYPERTENSION
     Dosage: 200MG-BID-ORAL
     Route: 048
     Dates: end: 20101101
  4. NAPROXEN SODIUM [Suspect]
     Dosage: ORAL
     Route: 048
  5. MOTRIN [Suspect]
     Dosage: ORAL
     Route: 048

REACTIONS (4)
  - HYPOTENSION [None]
  - ABDOMINAL PAIN UPPER [None]
  - PAIN [None]
  - HAEMORRHAGE [None]
